FAERS Safety Report 4423254-4 (Version None)
Quarter: 2004Q3

REPORT INFORMATION
  Report Type: 
  Country: None (occurrence: None)
  Receive Date: 20040810
  Receipt Date: 20040810
  Transmission Date: 20050211
  Serious: Yes (Death)
  Sender: FDA-Public Use
  Company Number: None

PATIENT
  Age: 87 Year
  Sex: Female
  Weight: 87.0906 kg

DRUGS (7)
  1. AVELOX [Suspect]
     Indication: PNEUMONIA
     Dosage: 400 MG QAM INTRAVENOUS
     Route: 042
     Dates: start: 20040414, end: 20040416
  2. PRIMAXIN [Concomitant]
  3. BACTROBAN [Concomitant]
  4. DOPAMINE HCL [Concomitant]
  5. HEPARIN [Concomitant]
  6. WARFARIN SODIUM [Concomitant]
  7. DONEZAPIL [Concomitant]

REACTIONS (3)
  - ALANINE AMINOTRANSFERASE INCREASED [None]
  - ASPARTATE AMINOTRANSFERASE INCREASED [None]
  - HEPATOTOXICITY [None]
